FAERS Safety Report 8928024 (Version 1)
Quarter: 2012Q4

REPORT INFORMATION
  Report Type: Spontaneous
  Country: US (occurrence: None)
  Receive Date: 20121120
  Receipt Date: 20121120
  Transmission Date: 20130627
  Serious: Yes (Other)
  Sender: FDA-Public Use
  Company Number: 2012AP003828

PATIENT
  Sex: Female

DRUGS (1)
  1. ALENDRONATE SODIUM TABLETS [Suspect]
     Indication: OSTEOPOROSIS

REACTIONS (7)
  - Multiple injuries [None]
  - Osteonecrosis of jaw [None]
  - Pain [None]
  - Anxiety [None]
  - Anhedonia [None]
  - Quality of life decreased [None]
  - Fear of disease [None]
